FAERS Safety Report 9677636 (Version 4)
Quarter: 2014Q1

REPORT INFORMATION
  Report Type: Spontaneous
  Country: DE (occurrence: DE)
  Receive Date: 20131108
  Receipt Date: 20140123
  Transmission Date: 20141002
  Serious: Yes (Hospitalization)
  Sender: FDA-Public Use
  Company Number: DE-JNJFOC-20131017380

PATIENT
  Age: 44 Year
  Sex: Male
  Weight: 75.5 kg

DRUGS (6)
  1. RISPERDAL [Suspect]
     Indication: AGGRESSION
     Route: 048
     Dates: start: 2011, end: 20131024
  2. CARBAMAZEPIN [Suspect]
     Indication: AGGRESSION
     Dosage: 200 MG IN MORNING AND 400 MG IN THE NIGHT??(INITIATED BEFORE NOV-2011)
     Route: 048
     Dates: start: 2011, end: 20131124
  3. LEVOMEPROMAZIN [Suspect]
     Indication: AGGRESSION
     Dosage: INITIATED BEFORE NOV-2011
     Route: 048
     Dates: start: 2011, end: 20131113
  4. SEROQUEL [Suspect]
     Indication: AGGRESSION
     Route: 048
     Dates: start: 201305, end: 20131022
  5. LAMOTRIGIN [Suspect]
     Indication: AFFECTIVE DISORDER
     Dosage: INITIATED BEFORE NOV-2011
     Route: 048
     Dates: start: 2011, end: 20131117
  6. TAVOR [Suspect]
     Indication: AGGRESSION
     Route: 065

REACTIONS (1)
  - Thrombocytopenia [Recovering/Resolving]
